FAERS Safety Report 12824291 (Version 1)
Quarter: 2016Q4

REPORT INFORMATION
  Report Type: Spontaneous
  Country: US (occurrence: US)
  Receive Date: 20161007
  Receipt Date: 20161007
  Transmission Date: 20170207
  Serious: Yes (Hospitalization, Other)
  Sender: FDA-Public Use
  Company Number: US-INDIVIOR LIMITED-INDV-090235-2016

PATIENT
  Age: 0 Day
  Sex: Female
  Weight: 2.54 kg

DRUGS (1)
  1. SUBOXONE [Suspect]
     Active Substance: BUPRENORPHINE HYDROCHLORIDE\NALOXONE HYDROCHLORIDE
     Indication: DRUG DEPENDENCE
     Dosage: UNK
     Route: 064
     Dates: end: 20160424

REACTIONS (3)
  - Foetal exposure during pregnancy [Recovered/Resolved]
  - Dyspnoea [Unknown]
  - Drug withdrawal syndrome neonatal [Not Recovered/Not Resolved]

NARRATIVE: CASE EVENT DATE: 20160424
